FAERS Safety Report 5492984-8 (Version None)
Quarter: 2007Q4

REPORT INFORMATION
  Report Type: 
  Country: None (occurrence: None)
  Receive Date: 20071023
  Receipt Date: 20071016
  Transmission Date: 20080405
  Serious: Yes (Death, Other)
  Sender: FDA-Public Use
  Company Number: JP-BRISTOL-MYERS SQUIBB COMPANY-13950225

PATIENT
  Age: 66 Year
  Sex: Male

DRUGS (1)
  1. ENDOXAN [Suspect]
     Indication: INTERSTITIAL LUNG DISEASE
     Route: 048

REACTIONS (2)
  - MYELODYSPLASTIC SYNDROME [None]
  - PNEUMONIA [None]
